FAERS Safety Report 19457961 (Version 1)
Quarter: 2021Q2

REPORT INFORMATION
  Report Type: Spontaneous
  Country: SE (occurrence: SE)
  Receive Date: 20210624
  Receipt Date: 20210624
  Transmission Date: 20210717
  Serious: Yes (Hospitalization)
  Sender: FDA-Public Use
  Company Number: SE-TEVA-2021-SE-1925447

PATIENT
  Age: 78 Year
  Sex: Male
  Weight: 80 kg

DRUGS (2)
  1. AMLODIPINE TEVA 10 MG TABLETT [Suspect]
     Active Substance: AMLODIPINE BESYLATE
     Dosage: 10 MG
     Route: 048
     Dates: start: 20171218
  2. VAXZEVRIA [Suspect]
     Active Substance: AZD-1222
     Dosage: FIRST DOSE
     Dates: start: 20210406

REACTIONS (2)
  - Myocardial infarction [Recovering/Resolving]
  - Increased tendency to bruise [Recovered/Resolved]

NARRATIVE: CASE EVENT DATE: 20210426
